FAERS Safety Report 10096673 (Version 2)
Quarter: 2014Q2

REPORT INFORMATION
  Report Type: Report from Study
  Country: MX (occurrence: MX)
  Receive Date: 20140422
  Receipt Date: 20140617
  Transmission Date: 20141212
  Serious: Yes (Other)
  Sender: FDA-Public Use
  Company Number: PHHY2014MX048423

PATIENT
  Age: 81 Year
  Sex: Female

DRUGS (5)
  1. EXFORGE [Suspect]
     Indication: HYPERTENSION
     Dosage: 1 TABLET (160/10 MG) DAILY
     Route: 048
  2. EXFORGE HCT [Suspect]
     Indication: HYPERTENSION
     Dosage: UNK UKN, UNK
     Route: 048
  3. ARTRIDOL//GLUCOSAMINE SULFATE [Concomitant]
     Indication: PAIN
     Dosage: 2 UKN, DAILY
  4. VARTALON [Concomitant]
     Indication: STOMA CARE
     Dosage: 2 UKN, DAILY
  5. NUMENCIAL//GALANTAMINE HYDROBROMIDE [Concomitant]
     Indication: NERVOUSNESS
     Dosage: 0.5 UKN, DAILY

REACTIONS (8)
  - Cataract [Not Recovered/Not Resolved]
  - Limb discomfort [Not Recovered/Not Resolved]
  - Gait disturbance [Not Recovered/Not Resolved]
  - Arthropathy [Recovered/Resolved]
  - Chondropathy [Not Recovered/Not Resolved]
  - Ear disorder [Not Recovered/Not Resolved]
  - Abdominal pain upper [Recovered/Resolved]
  - Diarrhoea [Not Recovered/Not Resolved]
